FAERS Safety Report 7209069-2 (Version None)
Quarter: 2011Q1

REPORT INFORMATION
  Report Type: 
  Country: None (occurrence: None)
  Receive Date: 20110104
  Receipt Date: 20110103
  Transmission Date: 20110831
  Serious: Yes (Hospitalization)
  Sender: FDA-Public Use
  Company Number: A0897965A

PATIENT
  Age: 61 Year
  Sex: Female

DRUGS (3)
  1. ALLI [Suspect]
     Indication: WEIGHT LOSS DIET
     Route: 048
  2. COLONIC CLEANSER [Concomitant]
  3. VITAMIN D [Concomitant]

REACTIONS (10)
  - CHOLECYSTECTOMY [None]
  - FLATULENCE [None]
  - MUSCULOSKELETAL CHEST PAIN [None]
  - ERUCTATION [None]
  - ABDOMINAL PAIN LOWER [None]
  - CHEST DISCOMFORT [None]
  - URINARY TRACT INFECTION [None]
  - CHOLELITHIASIS [None]
  - GALLBLADDER DISORDER [None]
  - DYSPEPSIA [None]
